FAERS Safety Report 6693772-7 (Version None)
Quarter: 2010Q2

REPORT INFORMATION
  Report Type: 
  Country: None (occurrence: None)
  Receive Date: 20100421
  Receipt Date: 20100409
  Transmission Date: 20101027
  Serious: Yes (Disabling)
  Sender: FDA-Public Use
  Company Number: 7001046

PATIENT
  Age: 67 Year
  Sex: Female

DRUGS (3)
  1. REBIF [Suspect]
     Indication: MULTIPLE SCLEROSIS
     Dosage: 44 MCG, 3 IN 1 WK, SUBCUTANEOUS
     Route: 058
     Dates: start: 20030804
  2. UNSPECIFIED HIGH BLOOD PRESSURE MEDICATION (ANTIHY-PERTENSIVES) [Concomitant]
  3. ADVIL LIQUI-GELS [Concomitant]

REACTIONS (3)
  - ABASIA [None]
  - BALANCE DISORDER [None]
  - OEDEMA PERIPHERAL [None]
